FAERS Safety Report 9377327 (Version 1)
Quarter: 2013Q3

REPORT INFORMATION
  Report Type: Report from Study
  Country: US (occurrence: US)
  Receive Date: 20130701
  Receipt Date: 20130701
  Transmission Date: 20140515
  Serious: Yes (Other)
  Sender: FDA-Public Use
  Company Number: PHEH2009US15949

PATIENT
  Age: 72 Year
  Sex: Female

DRUGS (14)
  1. GLEEVEC [Suspect]
     Indication: CHRONIC MYELOID LEUKAEMIA
     Dosage: 100 MG, TID  FOR 4 DAYS
     Route: 048
     Dates: start: 200705
  2. GLEEVEC [Suspect]
     Dosage: 100 MG, QID FOR 3 DAYS
     Route: 048
     Dates: start: 200705
  3. GLEEVEC [Suspect]
     Dosage: 100 MG, TID FOR 4 DAYS
     Dates: start: 20100203
  4. GLEEVEC [Suspect]
     Dosage: 100 MG, QID FOR 3 DAYS
     Dates: start: 20100203
  5. GLEEVEC [Suspect]
     Dosage: 3 DF, EVERY OTHER DAY
     Route: 048
     Dates: start: 20100203
  6. GLEEVEC [Suspect]
     Dosage: 4 DF, UEVERY OTHER DAY
     Route: 048
     Dates: start: 20100203
  7. GLEEVEC [Suspect]
     Dosage: 400 MG, EVERY 3 DAYS
     Route: 048
     Dates: start: 201204
  8. KLOR-CON [Concomitant]
     Dosage: UNK UKN, UNK
  9. NYSTATIN [Concomitant]
     Dosage: UNK UKN, UNK
  10. DIAMOX [Concomitant]
     Dosage: UNK UKN, UNK
  11. DEFLAZACORT [Concomitant]
     Dosage: UNK UKN, UNK
  12. SYNTHROID [Concomitant]
     Dosage: UNK UKN, UNK
  13. LASIX [Concomitant]
     Dosage: UNK UKN, UNK
  14. ARMOUR THYROID [Concomitant]
     Dosage: UNK UKN, UNK

REACTIONS (21)
  - Polycystic ovaries [Unknown]
  - Cystocele [Unknown]
  - Rectocele [Unknown]
  - Impaired healing [Unknown]
  - Decreased immune responsiveness [Unknown]
  - Hypersensitivity [Unknown]
  - Thyroid disorder [Unknown]
  - Heart rate decreased [Unknown]
  - Skin disorder [Unknown]
  - Pollakiuria [Unknown]
  - Diarrhoea [Unknown]
  - Muscle spasms [Not Recovered/Not Resolved]
  - Oedema peripheral [Not Recovered/Not Resolved]
  - Pruritus [Not Recovered/Not Resolved]
  - Constipation [Unknown]
  - Rash maculo-papular [Unknown]
  - Weight decreased [Unknown]
  - Palpitations [Unknown]
  - Anxiety [Unknown]
  - Gastrooesophageal reflux disease [Unknown]
  - Platelet count decreased [Unknown]
